FAERS Safety Report 9753902 (Version 1)
Quarter: 2013Q4

REPORT INFORMATION
  Report Type: Spontaneous
  Country: IN (occurrence: IN)
  Receive Date: 20131213
  Receipt Date: 20131213
  Transmission Date: 20140711
  Serious: Yes (Hospitalization)
  Sender: FDA-Public Use
  Company Number: PHHY2013IN143453

PATIENT
  Age: 14 Year
  Sex: Female

DRUGS (10)
  1. MORPHINE [Suspect]
     Dosage: 2 MG/H, UNK
     Route: 042
  2. PROMETHAZINE [Suspect]
     Dosage: 25 MG, TID
     Route: 042
  3. HALOPERIDOL [Suspect]
     Dosage: 2-10 MG, UNK
     Route: 042
  4. PROPOFOL [Suspect]
  5. MIDAZOLAM [Suspect]
     Dosage: 2 MG/H, UNK
     Route: 042
  6. DIAZEPAM [Suspect]
     Dosage: 10 MG, BID
     Route: 042
  7. DEXMEDETOMIDINE [Suspect]
     Indication: SEDATION
  8. ATROPINE [Concomitant]
     Dosage: 5 MG/H, UNK
     Route: 042
  9. PRALIDOXIME [Concomitant]
     Dosage: 1 G, 8 HOURLY
  10. ANTIBIOTICS [Concomitant]

REACTIONS (11)
  - Psychotic disorder [Recovered/Resolved]
  - Agitation [Recovered/Resolved]
  - Protrusion tongue [Recovered/Resolved]
  - Dyskinesia [Recovered/Resolved]
  - Oromandibular dystonia [Recovered/Resolved]
  - Aggression [Recovered/Resolved]
  - Muscle rigidity [Recovered/Resolved]
  - Extrapyramidal disorder [Recovered/Resolved]
  - Catatonia [Recovered/Resolved]
  - Psychomotor hyperactivity [Recovered/Resolved]
  - Mutism [Recovered/Resolved]
